FAERS Safety Report 9836487 (Version 1)
Quarter: 2014Q1

REPORT INFORMATION
  Report Type: Spontaneous
  Country: US (occurrence: US)
  Receive Date: 20140123
  Receipt Date: 20140123
  Transmission Date: 20141002
  Serious: Yes (Other)
  Sender: FDA-Public Use
  Company Number: US-BRISTOL-MYERS SQUIBB COMPANY-20005971

PATIENT
  Age: 88 Year
  Sex: Female
  Weight: 63.49 kg

DRUGS (12)
  1. ELIQUIS [Suspect]
     Dosage: INTERRUPTED ON?08-JAN-2014
  2. BYSTOLIC [Concomitant]
  3. ARICEPT [Concomitant]
  4. REMERON [Concomitant]
  5. SPIRIVA [Concomitant]
  6. ADVAIR [Concomitant]
  7. VESICARE [Concomitant]
  8. PANTOPRAZOLE [Concomitant]
  9. ALENDRONATE [Concomitant]
  10. VITAMIN D [Concomitant]
  11. CALCIUM [Concomitant]
  12. LASIX [Concomitant]

REACTIONS (2)
  - Convulsion [Unknown]
  - Drug dose omission [Unknown]
